FAERS Safety Report 6235455-3 (Version None)
Quarter: 2009Q2

REPORT INFORMATION
  Report Type: 
  Country: None (occurrence: None)
  Receive Date: 20090615
  Receipt Date: 20090602
  Transmission Date: 20091009
  Serious: Yes (Hospitalization)
  Sender: FDA-Public Use
  Company Number: 1000006746

PATIENT
  Age: 75 Year
  Sex: Male

DRUGS (8)
  1. CITALOPRAM HYDROBROMIDE [Suspect]
     Indication: DEPRESSION
     Dosage: 20 MG (20 MG, 1 IN 1 D), ORAL
     Route: 048
     Dates: start: 20080117, end: 20080122
  2. LYRICA [Suspect]
     Indication: NEURALGIA
     Dosage: INCREASED FROM TO TO 150 MG
     Dates: start: 20080111, end: 20080122
  3. DESLORATADINE [Suspect]
     Indication: PRURITUS GENERALISED
     Dosage: 5 MG (5 MG, 1 IN 1 D), ORAL
     Route: 048
     Dates: start: 20080114, end: 20080122
  4. ACTISKENAN (CAPSULES) [Suspect]
     Indication: PAIN
     Dosage: UP TO 20 MG DAILY (5 MG), ORAL
     Route: 048
     Dates: start: 20080111, end: 20080122
  5. ALFUZOSIN HCL [Suspect]
     Indication: DYSURIA
     Dosage: 10 MG (10 MG, 1 IN 1 D), ORAL
     Route: 048
     Dates: start: 20071220
  6. OFLOXACIN [Suspect]
     Indication: SINUSITIS
     Dates: start: 20071231, end: 20080118
  7. AUGMENTIN [Suspect]
     Indication: SINUSITIS
     Dates: start: 20071231, end: 20080118
  8. INDAPAMIDE [Concomitant]

REACTIONS (8)
  - AGRANULOCYTOSIS [None]
  - BRONCHOPNEUMONIA [None]
  - DEPRESSION [None]
  - NEURALGIA [None]
  - PAIN [None]
  - PRURITUS GENERALISED [None]
  - SINUSITIS [None]
  - SUPERINFECTION [None]
